FAERS Safety Report 21298342 (Version 1)
Quarter: 2022Q3

REPORT INFORMATION
  Report Type: Report from Study
  Country: HU (occurrence: HU)
  Receive Date: 20220906
  Receipt Date: 20220906
  Transmission Date: 20221026
  Serious: Yes (Other)
  Sender: FDA-Public Use
  Company Number: HU-MYLANLABS-2022M1091817

PATIENT
  Age: 5 Year
  Sex: Male

DRUGS (5)
  1. CISPLATIN [Suspect]
     Active Substance: CISPLATIN
     Indication: Neuroblastoma
     Dosage: RAPID COJEC REGIMEN
     Route: 065
  2. VINCRISTINE [Suspect]
     Active Substance: VINCRISTINE
     Indication: Neuroblastoma
     Dosage: RAPID COJEC REGIMEN
     Route: 065
  3. ETOPOSIDE [Suspect]
     Active Substance: ETOPOSIDE
     Indication: Neuroblastoma
     Dosage: RAPID COJEC REGIMEN
     Route: 065
  4. CYCLOPHOSPHAMIDE [Suspect]
     Active Substance: CYCLOPHOSPHAMIDE
     Indication: Neuroblastoma
     Dosage: RAPID COJEC REGIMEN
     Route: 065
  5. CARBOPLATIN [Suspect]
     Active Substance: CARBOPLATIN
     Indication: Neuroblastoma
     Dosage: RAPID COJEC REGIMEN
     Route: 065

REACTIONS (3)
  - Acute kidney injury [Unknown]
  - Drug ineffective [Unknown]
  - Neoplasm progression [Unknown]
